APPROVED DRUG PRODUCT: CHLORPROPAMIDE
Active Ingredient: CHLORPROPAMIDE
Strength: 250MG
Dosage Form/Route: TABLET;ORAL
Application: A084669 | Product #001
Applicant: SANDOZ INC
Approved: Approved Prior to Jan 1, 1982 | RLD: No | RS: No | Type: DISCN